FAERS Safety Report 5835977-0 (Version None)
Quarter: 2008Q3

REPORT INFORMATION
  Report Type: 
  Country: None (occurrence: None)
  Receive Date: 20080805
  Receipt Date: 20080728
  Transmission Date: 20090109
  Serious: Yes (Hospitalization)
  Sender: FDA-Public Use
  Company Number: 2008-00558

PATIENT
  Age: 69 Year
  Sex: Male
  Weight: 51 kg

DRUGS (13)
  1. VELCADE [Suspect]
     Indication: MULTIPLE MYELOMA
     Dosage: 1.30 MG/M2, INTRAVENOUS
     Route: 042
     Dates: start: 20080122, end: 20080212
  2. LEVOTHYROXINE SODIUM [Concomitant]
  3. AMLODIPINE BESYLATE [Concomitant]
  4. GLIMICRON (GLICLAZIDE) [Concomitant]
  5. URSO (USRODEOXYCHOLIC ACID) [Concomitant]
  6. LANSOPRAZOLE [Concomitant]
  7. MAG-LAX (MAGNESIUM HYDROXIDE, PARAFFIN, LIQUID) [Concomitant]
  8. PURSENNID (SENNA LEAF) [Concomitant]
  9. ALLOPURINOL [Concomitant]
  10. JUSO (SODIUM BICARBONATE) [Concomitant]
  11. NASEA (RAMOSETRON HYDROCHLORIDE) [Concomitant]
  12. MAXIPIME [Concomitant]
  13. PLATELETS [Concomitant]

REACTIONS (13)
  - CAPILLARY LEAK SYNDROME [None]
  - CARDIAC FAILURE CONGESTIVE [None]
  - CARDIAC HYPERTROPHY [None]
  - DELIRIUM [None]
  - DEPRESSED LEVEL OF CONSCIOUSNESS [None]
  - DIASTOLIC DYSFUNCTION [None]
  - FLUID OVERLOAD [None]
  - INTERSTITIAL LUNG DISEASE [None]
  - MULTI-ORGAN DISORDER [None]
  - NERVOUS SYSTEM DISORDER [None]
  - PLEURAL EFFUSION [None]
  - PULMONARY OEDEMA [None]
  - PYREXIA [None]
